FAERS Safety Report 12326709 (Version 1)
Quarter: 2016Q2

REPORT INFORMATION
  Report Type: Spontaneous
  Country: US (occurrence: US)
  Receive Date: 20160503
  Receipt Date: 20160503
  Transmission Date: 20160815
  Serious: Yes (Other)
  Sender: FDA-Public Use
  Company Number: US-BAYER-2016-076545

PATIENT
  Age: 22 Year
  Sex: Female

DRUGS (1)
  1. SKYLA [Suspect]
     Active Substance: LEVONORGESTREL
     Indication: CONTRACEPTION
     Dosage: 14 MCG/24HR, CONT
     Route: 015
     Dates: start: 201602, end: 20160420

REACTIONS (4)
  - Genital haemorrhage [None]
  - Device expulsion [None]
  - Abdominal pain lower [None]
  - Perforation [None]

NARRATIVE: CASE EVENT DATE: 2016
